FAERS Safety Report 7741346-9 (Version None)
Quarter: 2011Q3

REPORT INFORMATION
  Report Type: 
  Country: None (occurrence: None)
  Receive Date: 20110909
  Receipt Date: 20110902
  Transmission Date: 20111222
  Serious: Yes (Hospitalization, Other)
  Sender: FDA-Public Use
  Company Number: US-SANOFI-AVENTIS-2011SA055950

PATIENT
  Age: 71 Year
  Sex: Female
  Weight: 63 kg

DRUGS (14)
  1. ONE-A-DAY [Concomitant]
  2. PLAVIX [Suspect]
     Route: 048
     Dates: start: 20050101
  3. PLAVIX [Suspect]
     Indication: STENT PLACEMENT
     Route: 048
     Dates: start: 20050101
  4. ASPIRIN [Concomitant]
  5. ZETIA [Concomitant]
  6. FLAXSEED OIL [Concomitant]
  7. CALCIUM CARBONATE [Concomitant]
  8. OMEPRAZOLE [Concomitant]
  9. VITAMIN D [Concomitant]
     Dosage: DOSE:2000 UNIT(S)
  10. DILTIAZEM HYDROCHLORIDE [Concomitant]
  11. MAGNESIUM [Concomitant]
  12. ASCORBIC ACID/CALCIUM/MAGNESIUM/VITAMIN D NOS/ZINC [Concomitant]
  13. ASACOL [Concomitant]
  14. COQ10 [Concomitant]

REACTIONS (6)
  - TRANSIENT ISCHAEMIC ATTACK [None]
  - INFLAMMATION [None]
  - APHONIA [None]
  - MYOCARDIAL INFARCTION [None]
  - GASTROOESOPHAGEAL REFLUX DISEASE [None]
  - OESOPHAGEAL DISORDER [None]
